FAERS Safety Report 10717984 (Version 2)
Quarter: 2015Q1

REPORT INFORMATION
  Report Type: Report from Study
  Country: US (occurrence: US)
  Receive Date: 20150116
  Receipt Date: 20150209
  Transmission Date: 20150721
  Serious: Yes (Other)
  Sender: FDA-Public Use
  Company Number: US-GILEAD-2015-0131655

PATIENT
  Age: 53 Year
  Sex: Female

DRUGS (2)
  1. SOFOSBUVIR [Suspect]
     Active Substance: SOFOSBUVIR
     Indication: CHRONIC HEPATITIS C
     Dosage: 400 MG, UNK
     Route: 048
     Dates: start: 20141215, end: 20150204
  2. RIBAVIRIN. [Concomitant]
     Active Substance: RIBAVIRIN
     Indication: CHRONIC HEPATITIS C
     Dosage: 100 MG, UNK
     Route: 048
     Dates: start: 20141215, end: 20150204

REACTIONS (5)
  - Vascular rupture [Unknown]
  - Pain [Unknown]
  - Thrombosis [Unknown]
  - Contusion [Unknown]
  - Fear [Unknown]

NARRATIVE: CASE EVENT DATE: 20150105
